FAERS Safety Report 7867306-5 (Version None)
Quarter: 2011Q4

REPORT INFORMATION
  Report Type: 
  Country: None (occurrence: None)
  Receive Date: 20111028
  Receipt Date: 20111007
  Transmission Date: 20120403
  Serious: Yes (Other)
  Sender: FDA-Public Use
  Company Number: CA-JNJFOC-20111011697

PATIENT
  Sex: Male
  Weight: 78 kg

DRUGS (5)
  1. ALEVE [Concomitant]
  2. REMICADE [Suspect]
     Indication: PSORIATIC ARTHROPATHY
     Dates: start: 20111007
  3. REMICADE [Suspect]
     Dates: start: 20100701
  4. BETAMETHASONE [Concomitant]
     Route: 061
  5. CYCLOSPORINE [Concomitant]
     Route: 048

REACTIONS (4)
  - PRESYNCOPE [None]
  - FLUSHING [None]
  - INFUSION RELATED REACTION [None]
  - PALLOR [None]
